FAERS Safety Report 24666185 (Version 3)
Quarter: 2025Q4

REPORT INFORMATION
  Report Type: Report from Study
  Country: CA (occurrence: CA)
  Receive Date: 20241126
  Receipt Date: 20251016
  Transmission Date: 20260118
  Serious: Yes (Other)
  Sender: GLAXOSMITHKLINE
  Company Number: CA-GLAXOSMITHKLINE-CA2023098906

PATIENT
  Age: 44 Year
  Sex: Female

DRUGS (4)
  1. MEPOLIZUMAB [Suspect]
     Active Substance: MEPOLIZUMAB
     Indication: Asthma
     Dosage: 100 MG, Q4W
  2. PREDNISONE [Suspect]
     Active Substance: PREDNISONE
     Indication: Nasal polyps
     Dosage: UNK, ER PLAN
  3. NASONEX [Concomitant]
     Active Substance: MOMETASONE FUROATE
     Indication: Product used for unknown indication
     Dosage: UNK,NASONEX BUT DOESN^T USE IT
  4. PULMICORT TURBUHALER [Concomitant]
     Active Substance: BUDESONIDE
     Indication: Product used for unknown indication
     Dosage: UNK

REACTIONS (9)
  - Nasal polyps [Unknown]
  - Pyrexia [Unknown]
  - Rash macular [Unknown]
  - Seasonal allergy [Unknown]
  - Rash [Unknown]
  - Stress [Unknown]
  - Alopecia [Unknown]
  - Premature menopause [Unknown]
  - Drug ineffective [Unknown]

NARRATIVE: CASE EVENT DATE: 20230714
